FAERS Safety Report 10924927 (Version 1)
Quarter: 2015Q1

REPORT INFORMATION
  Report Type: Spontaneous
  Country: None (occurrence: None)
  Receive Date: 20150316
  Receipt Date: 20150316
  Transmission Date: 20150721
  Serious: Yes (Other)
  Sender: FDA-Public Use
  Company Number: None

PATIENT
  Age: 28 Year
  Sex: Female
  Weight: 61.24 kg

DRUGS (1)
  1. CLINDAMYCIN PHOSPHATE. [Suspect]
     Active Substance: CLINDAMYCIN PHOSPHATE
     Indication: ACNE
     Dosage: THIN LAYER, APPLIED TO A SURFACE, USUALLY THE SKIN
     Route: 061
     Dates: start: 20110101, end: 20110731

REACTIONS (6)
  - Gastrointestinal disorder [None]
  - Weight decreased [None]
  - Abdominal pain upper [None]
  - Malabsorption [None]
  - Diarrhoea [None]
  - Nausea [None]

NARRATIVE: CASE EVENT DATE: 20110707
